FAERS Safety Report 16190763 (Version 1)
Quarter: 2019Q2

REPORT INFORMATION
  Report Type: Spontaneous
  Country: IT (occurrence: IT)
  Receive Date: 20190412
  Receipt Date: 20190412
  Transmission Date: 20190711
  Serious: Yes (Other)
  Sender: FDA-Public Use
  Company Number: IT-AMGEN-ITASP2019057350

PATIENT
  Age: 47 Year
  Sex: Female
  Weight: 56 kg

DRUGS (1)
  1. ENBREL [Suspect]
     Active Substance: ETANERCEPT
     Indication: ARTHRITIS
     Dosage: 50 MILLIGRAM, QWK
     Route: 065
     Dates: end: 20190221

REACTIONS (4)
  - Antiphospholipid antibodies positive [Recovering/Resolving]
  - Antinuclear antibody positive [Recovering/Resolving]
  - Sjogren^s syndrome [Recovering/Resolving]
  - Product use in unapproved indication [Unknown]
